FAERS Safety Report 12882182 (Version 1)
Quarter: 2016Q4

REPORT INFORMATION
  Report Type: Spontaneous
  Country: GB (occurrence: GB)
  Receive Date: 20161025
  Receipt Date: 20161025
  Transmission Date: 20170207
  Serious: Yes (Disabling, Other)
  Sender: FDA-Public Use
  Company Number: GB-PFIZER INC-2016491335

PATIENT
  Age: 22 Year
  Sex: Female
  Weight: 53 kg

DRUGS (2)
  1. COCODAMOL [Concomitant]
     Active Substance: ACETAMINOPHEN\CODEINE PHOSPHATE
     Dosage: UNK
  2. DEPO-PROVERA [Suspect]
     Active Substance: MEDROXYPROGESTERONE ACETATE
     Indication: CONTRACEPTION
     Dosage: 1 DF, EVERY 3 MONTHS (EVERY 11/12 WEEKS)
     Route: 051
     Dates: start: 20140303, end: 20160901

REACTIONS (5)
  - Fibromyalgia [Recovering/Resolving]
  - Arthralgia [Recovering/Resolving]
  - Back pain [Recovering/Resolving]
  - Myalgia [Recovering/Resolving]
  - Neck pain [Recovering/Resolving]

NARRATIVE: CASE EVENT DATE: 20141201
